FAERS Safety Report 14150292 (Version 1)
Quarter: 2017Q4

REPORT INFORMATION
  Report Type: Spontaneous
  Country: US (occurrence: US)
  Receive Date: 20171101
  Receipt Date: 20171101
  Transmission Date: 20180321
  Serious: No
  Sender: FDA-Public Use
  Company Number: US-NOVOPROD-553552

PATIENT
  Age: 88 Year
  Sex: Female

DRUGS (15)
  1. METOPROLOL. [Concomitant]
     Active Substance: METOPROLOL
     Indication: ATRIAL FIBRILLATION
  2. FLONASE [Concomitant]
     Active Substance: FLUTICASONE PROPIONATE
     Indication: HYPERSENSITIVITY
     Dosage: 2 DOSES, 1 IN 1 DAY
     Route: 045
  3. LISINOPRIL. [Concomitant]
     Active Substance: LISINOPRIL
     Indication: HYPERTENSION
  4. COENZYME Q10 [Concomitant]
     Active Substance: UBIDECARENONE
     Indication: PRODUCT USED FOR UNKNOWN INDICATION
  5. NORVASC [Concomitant]
     Active Substance: AMLODIPINE BESYLATE
     Indication: HYPERTENSION
  6. VAGIFEM LD [Suspect]
     Active Substance: ESTRADIOL
     Dosage: 10 ?G, TWICE WEEKLY
     Route: 067
     Dates: start: 2017
  7. XARELTO [Suspect]
     Active Substance: RIVAROXABAN
     Indication: ATRIAL FIBRILLATION
     Dosage: 15 MG, QD
     Route: 048
     Dates: start: 20150628, end: 2017
  8. AMLODIPINE [Concomitant]
     Active Substance: AMLODIPINE BESYLATE
     Indication: HYPERTENSION
     Dosage: 5 MG, QD
     Route: 048
  9. XARELTO [Suspect]
     Active Substance: RIVAROXABAN
     Dosage: 15 MG, QD
     Route: 048
     Dates: start: 20170515
  10. LIBRAX [Concomitant]
     Active Substance: CHLORDIAZEPOXIDE HYDROCHLORIDE\CLIDINIUM BROMIDE
     Indication: ANXIETY
     Dosage: 1 IN 1 DAY
  11. ESTRADIOL. [Suspect]
     Active Substance: ESTRADIOL
     Indication: MENOPAUSE
     Dosage: UNK
     Dates: start: 2017, end: 2017
  12. NIRVAXAL [Concomitant]
     Indication: ANXIETY
  13. VAGIFEM LD [Suspect]
     Active Substance: ESTRADIOL
     Indication: MENOPAUSE
     Dosage: 10 ?G, TWICE WEEKLY
     Route: 067
     Dates: start: 20150823, end: 2017
  14. VALIUM [Concomitant]
     Active Substance: DIAZEPAM
     Indication: INSOMNIA
     Dosage: 2.5
     Route: 048
  15. VITAMIN D3 [Concomitant]
     Active Substance: CHOLECALCIFEROL
     Indication: PRODUCT USED FOR UNKNOWN INDICATION
     Dosage: 2000 DOSE , 1 IN 1 DAY
     Route: 048

REACTIONS (2)
  - Vaginal discharge [Recovered/Resolved]
  - Vaginal discharge [Recovered/Resolved]

NARRATIVE: CASE EVENT DATE: 2017
